FAERS Safety Report 21006238 (Version 2)
Quarter: 2022Q3

REPORT INFORMATION
  Report Type: Spontaneous
  Country: US (occurrence: US)
  Receive Date: 20220624
  Receipt Date: 20220705
  Transmission Date: 20221027
  Serious: Yes (Other)
  Sender: FDA-Public Use
  Company Number: US-BRISTOL-MYERS SQUIBB COMPANY-2022-057868

PATIENT
  Age: 76 Year
  Sex: Female

DRUGS (1)
  1. REVLIMID [Suspect]
     Active Substance: LENALIDOMIDE
     Indication: Product used for unknown indication
     Dosage: DOSAGE CYCLE: 1-21 OF A 28 DAY CYCLE
     Route: 048
     Dates: start: 20220526

REACTIONS (5)
  - Hypokalaemia [Unknown]
  - Tremor [Unknown]
  - Limb discomfort [Unknown]
  - Feeling jittery [Unknown]
  - Insomnia [Unknown]
